FAERS Safety Report 10261632 (Version 1)
Quarter: 2014Q2

REPORT INFORMATION
  Report Type: Spontaneous
  Country: US (occurrence: US)
  Receive Date: 20140626
  Receipt Date: 20140626
  Transmission Date: 20141212
  Serious: Yes (Death)
  Sender: FDA-Public Use
  Company Number: US-PFIZER INC-2014174087

PATIENT
  Age: 58 Year
  Sex: Male
  Weight: 100.22 kg

DRUGS (2)
  1. CAMPTOSAR [Suspect]
     Indication: RECTAL CANCER
     Dosage: 360 MG, 1X/DAY
     Route: 042
     Dates: start: 20140408, end: 20140505
  2. AVASTIN [Concomitant]
     Indication: RECTAL CANCER
     Dosage: 487.5 MG, ONCE IN EVERY 14 DAYS

REACTIONS (1)
  - Death [Fatal]
